FAERS Safety Report 7731990-7 (Version None)
Quarter: 2011Q3

REPORT INFORMATION
  Report Type: 
  Country: None (occurrence: None)
  Receive Date: 20110906
  Receipt Date: 20110722
  Transmission Date: 20111222
  Serious: No
  Sender: FDA-Public Use
  Company Number: US-AMGEN-USASP2011037859

PATIENT
  Sex: Female

DRUGS (3)
  1. VITAMINS                           /00067501/ [Concomitant]
  2. MINERALS NOS [Concomitant]
  3. PROLIA [Suspect]
     Indication: OSTEOPOROSIS POSTMENOPAUSAL
     Dosage: 60 MG, Q6MO
     Dates: start: 20110401

REACTIONS (10)
  - ADVERSE DRUG REACTION [None]
  - PAIN [None]
  - ABDOMINAL DISTENSION [None]
  - RASH GENERALISED [None]
  - MEDIAL TIBIAL STRESS SYNDROME [None]
  - SLUGGISHNESS [None]
  - PAIN IN EXTREMITY [None]
  - OROPHARYNGEAL PAIN [None]
  - PRURITUS [None]
  - FATIGUE [None]
